FAERS Safety Report 17153827 (Version 1)
Quarter: 2019Q4

REPORT INFORMATION
  Report Type: Spontaneous
  Country: DE (occurrence: DE)
  Receive Date: 20191213
  Receipt Date: 20191213
  Transmission Date: 20200122
  Serious: Yes (Other)
  Sender: FDA-Public Use
  Company Number: DE-MYLANLABS-2019M1122732

PATIENT
  Sex: Female

DRUGS (1)
  1. VALSARTAN. [Suspect]
     Active Substance: VALSARTAN
     Indication: PRODUCT USED FOR UNKNOWN INDICATION
     Dosage: 160 MG, QD (DAILY IN THE MORNING)
     Route: 065
     Dates: start: 2012, end: 2018

REACTIONS (6)
  - Mental impairment [Unknown]
  - Contusion [Unknown]
  - Sleep disorder [Unknown]
  - Bone pain [Unknown]
  - Disturbance in attention [Unknown]
  - Milia [Unknown]
